FAERS Safety Report 8512308-9 (Version None)
Quarter: 2012Q2

REPORT INFORMATION
  Report Type: 
  Country: None (occurrence: None)
  Receive Date: 20120405
  Receipt Date: 20080922
  Transmission Date: 20120825
  Serious: Yes (Other)
  Sender: FDA-Public Use
  Company Number: PHEH2008US08285

PATIENT
  Age: 67 Year
  Sex: Female
  Weight: 92.5 kg

DRUGS (1)
  1. RECLAST [Suspect]
     Dosage: INFUSION
     Dates: start: 20080801, end: 20080801

REACTIONS (6)
  - DYSPNOEA [None]
  - CHEST PAIN [None]
  - PAIN IN EXTREMITY [None]
  - HYPERSENSITIVITY [None]
  - BONE PAIN [None]
  - ASTHMA [None]
